FAERS Safety Report 6920858-1 (Version None)
Quarter: 2010Q3

REPORT INFORMATION
  Report Type: 
  Country: None (occurrence: None)
  Receive Date: 20100812
  Receipt Date: 20100803
  Transmission Date: 20110219
  Serious: Yes (Other)
  Sender: FDA-Public Use
  Company Number: US-ALEXION-A201000908

PATIENT
  Age: 27 Year
  Sex: Female
  Weight: 104 kg

DRUGS (6)
  1. SOLIRIS [Suspect]
     Indication: HAEMOLYTIC URAEMIC SYNDROME
     Dosage: 900 MG, SINGLE
     Route: 042
     Dates: start: 20090915, end: 20090915
  2. LASIX [Concomitant]
     Dosage: 40 MG, BID
  3. PREDNISONE TAB [Concomitant]
     Dosage: 30 MG, UNK
  4. FOLIC ACID [Concomitant]
  5. ALDACTONE [Concomitant]
     Dosage: 25 MG, UNK
  6. LOVENOX [Concomitant]
     Dosage: 100 MG, UNK

REACTIONS (2)
  - PRESYNCOPE [None]
  - WHITE BLOOD CELL COUNT INCREASED [None]
